FAERS Safety Report 12153851 (Version 7)
Quarter: 2016Q3

REPORT INFORMATION
  Report Type: Report from Study
  Country: CA (occurrence: CA)
  Receive Date: 20160307
  Receipt Date: 20160802
  Transmission Date: 20161109
  Serious: Yes (Hospitalization, Other)
  Sender: FDA-Public Use
  Company Number: CA-BRISTOL-MYERS SQUIBB COMPANY-BMS-2016-013938

PATIENT
  Age: 65 Year
  Sex: Female

DRUGS (4)
  1. VOLTAREN [Concomitant]
     Active Substance: DICLOFENAC SODIUM
     Indication: PRODUCT USED FOR UNKNOWN INDICATION
     Route: 065
  2. ADVAIR HFA [Concomitant]
     Active Substance: FLUTICASONE PROPIONATE\SALMETEROL XINAFOATE
     Indication: PRODUCT USED FOR UNKNOWN INDICATION
     Route: 065
  3. SPIRIVA [Concomitant]
     Active Substance: TIOTROPIUM BROMIDE MONOHYDRATE
     Indication: PRODUCT USED FOR UNKNOWN INDICATION
     Route: 065
  4. ABATACEPT [Suspect]
     Active Substance: ABATACEPT
     Indication: RHEUMATOID ARTHRITIS
     Dosage: 750 MG, Q4WK
     Route: 042
     Dates: start: 20141104

REACTIONS (7)
  - Pain in extremity [Recovering/Resolving]
  - Oedema [Unknown]
  - Drug ineffective [Unknown]
  - Pulmonary oedema [Recovering/Resolving]
  - Arthralgia [Unknown]
  - Renal disorder [Recovering/Resolving]
  - Urinary tract infection [Unknown]

NARRATIVE: CASE EVENT DATE: 201602
